FAERS Safety Report 19838604 (Version 1)
Quarter: 2021Q3

REPORT INFORMATION
  Report Type: Spontaneous
  Country: CZ (occurrence: CZ)
  Receive Date: 20210916
  Receipt Date: 20210916
  Transmission Date: 20211014
  Serious: Yes (Life-Threatening, Hospitalization, Other)
  Sender: FDA-Public Use
  Company Number: NVSC2021CZ208098

PATIENT
  Age: 60 Year
  Sex: Female

DRUGS (5)
  1. ROSUCARD [Concomitant]
     Active Substance: ROSUVASTATIN CALCIUM
     Indication: PRODUCT USED FOR UNKNOWN INDICATION
     Dosage: UNK
     Route: 065
  2. TASIGNA [Suspect]
     Active Substance: NILOTINIB
     Indication: PHILADELPHIA POSITIVE CHRONIC MYELOID LEUKAEMIA
     Dosage: 150 MG (2?0?2)
     Route: 048
     Dates: start: 20170802, end: 20210823
  3. HELICID [Concomitant]
     Active Substance: OMEPRAZOLE
     Indication: PRODUCT USED FOR UNKNOWN INDICATION
     Dosage: UNK
     Route: 065
  4. ALOPURINOL [Concomitant]
     Active Substance: ALLOPURINOL
     Indication: PRODUCT USED FOR UNKNOWN INDICATION
     Dosage: UNK
     Route: 065
  5. PREDNISON [Concomitant]
     Active Substance: PREDNISONE
     Indication: PRODUCT USED FOR UNKNOWN INDICATION
     Dosage: UNK
     Route: 065

REACTIONS (8)
  - Alopecia [Unknown]
  - Nystagmus [Recovering/Resolving]
  - Drug eruption [Unknown]
  - Cerebrovascular accident [Recovering/Resolving]
  - Facial paresis [Recovering/Resolving]
  - Hemiparesis [Recovering/Resolving]
  - Hypercholesterolaemia [Unknown]
  - Hemiataxia [Recovering/Resolving]

NARRATIVE: CASE EVENT DATE: 20210803
